FAERS Safety Report 8974289 (Version 1)
Quarter: 2012Q4

REPORT INFORMATION
  Report Type: Spontaneous
  Country: US (occurrence: None)
  Receive Date: 20121212
  Receipt Date: 20121212
  Transmission Date: 20130627
  Serious: Yes (Death)
  Sender: FDA-Public Use
  Company Number: 2012AP004204

PATIENT
  Age: 32 Year
  Sex: Male

DRUGS (9)
  1. LEVETIRACETAM TABLETS 1000MG (LEVETIRACETAM) [Suspect]
     Indication: DRUG USE FOR UNKNOWN INDICATION
  2. MIRTAZAPINE TABLETS [Suspect]
  3. NORDIAZEPAM [Suspect]
  4. DIAZEPAM [Suspect]
  5. OXAZEPAM [Suspect]
  6. OXYCODONE [Suspect]
  7. OXYMORPHONE [Suspect]
  8. PREGABALIN [Suspect]
  9. TEMAZEPAM [Suspect]

REACTIONS (3)
  - Brain injury [None]
  - Accidental poisoning [None]
  - Drug level below therapeutic [None]
